FAERS Safety Report 23774724 (Version 1)
Quarter: 2024Q2

REPORT INFORMATION
  Report Type: Spontaneous
  Country: GB (occurrence: GB)
  Receive Date: 20240423
  Receipt Date: 20240423
  Transmission Date: 20240716
  Serious: Yes (Other)
  Sender: FDA-Public Use
  Company Number: GB-MHRA-TPP17136753C7723770YC1704889915782

PATIENT
  Age: 65 Year
  Sex: Female
  Weight: 69 kg

DRUGS (5)
  1. SERTRALINE [Suspect]
     Active Substance: SERTRALINE HYDROCHLORIDE
     Indication: Product used for unknown indication
     Dosage: USE AS DIRECTED
     Route: 065
     Dates: start: 20231012
  2. UNSPECIFIED INGREDIENT [Concomitant]
     Active Substance: UNSPECIFIED INGREDIENT
     Indication: Product used for unknown indication
     Dosage: INHALE ONE OR TWO PUFFS WHEN REQUIRED FOR BREAT...
     Route: 055
     Dates: start: 20230222
  3. EZETIMIBE [Concomitant]
     Active Substance: EZETIMIBE
     Indication: Product used for unknown indication
     Dosage: 1 DOSAGE FORM, 1 DOSE
     Route: 065
     Dates: start: 20231012
  4. SIMVASTATIN [Concomitant]
     Active Substance: SIMVASTATIN
     Indication: Product used for unknown indication
     Dosage: NIGHT
     Route: 065
     Dates: start: 20230222, end: 20231023
  5. TIOGIVA [Concomitant]
     Indication: Product used for unknown indication
     Dosage: REPLACE DEVICE EVERY ...
     Route: 055
     Dates: start: 20230222

REACTIONS (2)
  - Migraine [Recovered/Resolved]
  - Heart rate decreased [Unknown]
